FAERS Safety Report 12949227 (Version 1)
Quarter: 2016Q4

REPORT INFORMATION
  Report Type: Spontaneous
  Country: RU (occurrence: RU)
  Receive Date: 20161116
  Receipt Date: 20161116
  Transmission Date: 20170207
  Serious: Yes (Other)
  Sender: FDA-Public Use
  Company Number: RU-ASTRAZENECA-2016SF19105

PATIENT
  Age: 54 Year
  Sex: Male
  Weight: 81 kg

DRUGS (6)
  1. BRILINTA [Suspect]
     Active Substance: TICAGRELOR
     Indication: MYOCARDIAL INFARCTION
     Route: 048
     Dates: start: 201608, end: 20160928
  2. BETALOC ZOK [Concomitant]
     Active Substance: METOPROLOL SUCCINATE
  3. PRESTARIUM [Concomitant]
     Active Substance: PERINDOPRIL
  4. THROMBO ASS [Concomitant]
     Active Substance: ASPIRIN
  5. GALVUS [Concomitant]
     Active Substance: VILDAGLIPTIN
  6. ATORVASTATIN [Concomitant]
     Active Substance: ATORVASTATIN

REACTIONS (1)
  - Cerebrovascular accident [Unknown]

NARRATIVE: CASE EVENT DATE: 20160928
